FAERS Safety Report 8494206-2 (Version None)
Quarter: 2012Q3

REPORT INFORMATION
  Report Type: 
  Country: None (occurrence: None)
  Receive Date: 20120709
  Receipt Date: 20120705
  Transmission Date: 20120928
  Serious: Yes (Hospitalization, Other)
  Sender: FDA-Public Use
  Company Number: PHHY2012AU052761

PATIENT
  Sex: Female

DRUGS (9)
  1. CARTIA XT [Concomitant]
     Dosage: 1 IN THE MORNING
  2. METFORMIN HCL [Concomitant]
     Dosage: 1000 MG, TID
  3. DIAMICRON [Concomitant]
     Dosage: 60 MG, HALF IN THE MORNING
  4. LEVOTHYROXINE SODIUM [Concomitant]
     Dosage: 0.1 MG, UNK
  5. RABEPRAZOLE SODIUM [Concomitant]
     Dosage: 20 MG, BID
  6. ZOLEDRONOC ACID [Suspect]
     Dosage: 5 MG, UNK
     Route: 042
     Dates: start: 20110101
  7. CALCIUM CARBONATE [Concomitant]
     Dosage: 1 DF, 1500 MG (600MGCA) TABLET 1 TWICE A DAY
  8. KARVEA [Concomitant]
     Dosage: 150 MG, TABLET HALF IN THE MORNING
  9. LIPITOR [Concomitant]
     Dosage: 40 MG, 1 TABLET BEFORE BED

REACTIONS (6)
  - URINARY TRACT INFECTION [None]
  - CYSTITIS [None]
  - HYPOTENSION [None]
  - CERVICAL VERTEBRAL FRACTURE [None]
  - FALL [None]
  - SEPSIS [None]
